FAERS Safety Report 6463318-7 (Version None)
Quarter: 2009Q4

REPORT INFORMATION
  Report Type: 
  Country: None (occurrence: None)
  Receive Date: 20091130
  Receipt Date: 20090720
  Transmission Date: 20100525
  Serious: Yes (Other)
  Sender: FDA-Public Use
  Company Number: US-AMGEN-QUU354416

PATIENT
  Sex: Female

DRUGS (11)
  1. ENBREL [Suspect]
     Indication: RHEUMATOID ARTHRITIS
     Dates: start: 19990101, end: 20090101
  2. PREDNISONE [Concomitant]
  3. FORTEO [Concomitant]
  4. LEXAPRO [Concomitant]
  5. PREDNISONE [Concomitant]
  6. BUSPAR [Concomitant]
  7. NEXIUM [Concomitant]
  8. METHOTREXATE [Concomitant]
  9. PROVIGIL [Concomitant]
  10. ROXICODONE [Concomitant]
  11. CYMBALTA [Concomitant]

REACTIONS (7)
  - CANDIDIASIS [None]
  - DEVICE RELATED INFECTION [None]
  - IMPAIRED HEALING [None]
  - INFECTION IN AN IMMUNOCOMPROMISED HOST [None]
  - INTERVERTEBRAL DISC DEGENERATION [None]
  - PNEUMONIA [None]
  - RHEUMATOID ARTHRITIS [None]
